FAERS Safety Report 8051188-5 (Version None)
Quarter: 2012Q1

REPORT INFORMATION
  Report Type: 
  Country: None (occurrence: None)
  Receive Date: 20120117
  Receipt Date: 20120114
  Transmission Date: 20120608
  Serious: Yes (Life-Threatening, Hospitalization, Disabling, Other)
  Sender: FDA-Public Use
  Company Number: PHHY2012SA002384

PATIENT
  Sex: Female

DRUGS (5)
  1. TASIGNA [Suspect]
     Dosage: UNK
     Route: 048
     Dates: start: 20111130, end: 20120101
  2. AMITRIPTYLINE HCL [Concomitant]
  3. AMLODIPINE [Concomitant]
  4. TASIGNA [Suspect]
     Indication: CHRONIC MYELOID LEUKAEMIA
     Dosage: 400 MG, BID
     Route: 048
     Dates: start: 20101201, end: 20110830
  5. CAPTOPRIL [Concomitant]

REACTIONS (5)
  - HYPOAESTHESIA [None]
  - PERIPHERAL ISCHAEMIA [None]
  - GANGRENE [None]
  - PERIPHERAL ARTERIAL OCCLUSIVE DISEASE [None]
  - PARAESTHESIA [None]
